FAERS Safety Report 7562149-4 (Version None)
Quarter: 2011Q2

REPORT INFORMATION
  Report Type: 
  Country: None (occurrence: None)
  Receive Date: 20110620
  Receipt Date: 20110620
  Transmission Date: 20111010
  Serious: Yes (Hospitalization)
  Sender: FDA-Public Use
  Company Number: None

PATIENT
  Age: 56 Year
  Sex: Female
  Weight: 93.4 kg

DRUGS (5)
  1. ACEBUTOLOL [Concomitant]
  2. DILTIAZEM [Concomitant]
  3. ALPRAZOLAM [Concomitant]
  4. MAGNESIUM CITRATE ORAL SOLUTION, GRAPE FLAVOR [Suspect]
     Indication: CONSTIPATION
     Dosage: 10 FL .OZ ONCE ORAL 047
     Route: 048
     Dates: start: 20110613
  5. ZOLPIDEM [Concomitant]

REACTIONS (9)
  - SYNCOPE [None]
  - HYPOTENSION [None]
  - SWOLLEN TONGUE [None]
  - LETHARGY [None]
  - BLOOD PRESSURE IMMEASURABLE [None]
  - URTICARIA [None]
  - VOMITING [None]
  - ABDOMINAL PAIN [None]
  - HAEMATOCHEZIA [None]
